FAERS Safety Report 20860717 (Version 1)
Quarter: 2022Q2

REPORT INFORMATION
  Report Type: Other
  Country: US (occurrence: None)
  Receive Date: 20220523
  Receipt Date: 20220523
  Transmission Date: 20220721
  Serious: Yes (Hospitalization)
  Sender: FDA-Public Use
  Company Number: US-ROCHE-3100737

PATIENT
  Sex: Female

DRUGS (27)
  1. ACTEMRA [Suspect]
     Active Substance: TOCILIZUMAB
     Indication: Giant cell arteritis
     Route: 058
     Dates: start: 202105
  2. ACTEMRA [Suspect]
     Active Substance: TOCILIZUMAB
  3. ACTEMRA [Suspect]
     Active Substance: TOCILIZUMAB
  4. OXYCODONE AND ACETAMINOPHEN [Concomitant]
     Active Substance: ACETAMINOPHEN\OXYCODONE HYDROCHLORIDE
  5. PRIMIDONE [Concomitant]
     Active Substance: PRIMIDONE
  6. CARTIA (UNITED STATES) [Concomitant]
  7. GLIMEPIRIDE [Concomitant]
     Active Substance: GLIMEPIRIDE
  8. ATORVASTATIN CALCIUM [Concomitant]
     Active Substance: ATORVASTATIN CALCIUM
  9. CLOPIDOGREL BISULFATE [Concomitant]
     Active Substance: CLOPIDOGREL BISULFATE
  10. LISINOPRIL [Concomitant]
     Active Substance: LISINOPRIL
  11. GABAPENTIN [Concomitant]
     Active Substance: GABAPENTIN
  12. LANTUS SOLOSTAR [Concomitant]
     Active Substance: INSULIN GLARGINE
  13. TIZANIDINE [Concomitant]
     Active Substance: TIZANIDINE
  14. VICTOZA [Concomitant]
     Active Substance: LIRAGLUTIDE
  15. MELOXICAM [Concomitant]
     Active Substance: MELOXICAM
  16. METHENAMINE [Concomitant]
     Active Substance: METHENAMINE
  17. TRIMETHOPRIM [Concomitant]
     Active Substance: TRIMETHOPRIM
  18. DULOXETINE [Concomitant]
     Active Substance: DULOXETINE
  19. JARDIANCE [Concomitant]
     Active Substance: EMPAGLIFLOZIN
  20. FUROSEMIDE [Concomitant]
     Active Substance: FUROSEMIDE
  21. NITROSTAT [Concomitant]
     Active Substance: NITROGLYCERIN
  22. NITROFURANTOIN [Concomitant]
     Active Substance: NITROFURANTOIN
  23. NYSTATIN [Concomitant]
     Active Substance: NYSTATIN
  24. DIFLUCAN [Concomitant]
     Active Substance: FLUCONAZOLE
  25. LIDOCAINE [Concomitant]
     Active Substance: LIDOCAINE
  26. SILVADENE [Concomitant]
     Active Substance: SILVER SULFADIAZINE
  27. HUMALOG [Concomitant]
     Active Substance: INSULIN LISPRO

REACTIONS (2)
  - Myocardial infarction [Unknown]
  - Urinary tract infection [Unknown]
